FAERS Safety Report 24212472 (Version 2)
Quarter: 2024Q3

REPORT INFORMATION
  Report Type: Spontaneous
  Country: ES (occurrence: ES)
  Receive Date: 20240815
  Receipt Date: 20240822
  Transmission Date: 20241017
  Serious: Yes (Hospitalization, Other)
  Sender: HIKMA
  Company Number: ES-HIKMA PHARMACEUTICALS-ES-H14001-24-07379

PATIENT
  Age: 79 Year
  Sex: Male
  Weight: 78 kg

DRUGS (6)
  1. CETUXIMAB [Suspect]
     Active Substance: CETUXIMAB
     Indication: Colorectal cancer
     Dosage: 603 MILLIGRAM, QOW
     Route: 042
     Dates: start: 20240610, end: 20240617
  2. ENCORAFENIB [Suspect]
     Active Substance: ENCORAFENIB
     Indication: Colorectal cancer
     Dosage: 300 MILLIGRAM, QD
     Route: 048
     Dates: start: 20240610, end: 20240617
  3. FLUOROURACIL [Suspect]
     Active Substance: FLUOROURACIL
     Dosage: 4764 MILLIGRAM, QOW, 5-FU INFUSION
     Route: 042
     Dates: start: 20240610, end: 20240610
  4. FLUOROURACIL [Suspect]
     Active Substance: FLUOROURACIL
     Indication: Colorectal cancer
     Dosage: 794 MILLIGRAM, QOW, BOLUS 5-FU, IV BOLUS
     Route: 040
     Dates: start: 20240610, end: 20240617
  5. IRINOTECAN HYDROCHLORIDE [Suspect]
     Active Substance: IRINOTECAN HYDROCHLORIDE
     Indication: Colorectal cancer
     Dosage: 357.3 MILLIGRAM, QOW
     Route: 042
     Dates: start: 20240610, end: 20240617
  6. LEUCOVORIN [Suspect]
     Active Substance: LEUCOVORIN\LEUCOVORIN CALCIUM
     Indication: Colorectal cancer
     Dosage: 794 MILLIGRAM, QOW
     Route: 042
     Dates: start: 20240610, end: 20240617

REACTIONS (4)
  - Fatigue [Recovered/Resolved]
  - Asthenia [Unknown]
  - Decreased appetite [Unknown]
  - Febrile neutropenia [Recovered/Resolved]

NARRATIVE: CASE EVENT DATE: 20240618
